FAERS Safety Report 5571552-3 (Version None)
Quarter: 2007Q4

REPORT INFORMATION
  Report Type: 
  Country: None (occurrence: None)
  Receive Date: 20071219
  Receipt Date: 20071213
  Transmission Date: 20080405
  Serious: Yes (Other)
  Sender: FDA-Public Use
  Company Number: 2007SP022295

PATIENT
  Age: 48 Year
  Sex: Female
  Weight: 69.8539 kg

DRUGS (6)
  1. PEG-INTRON [Suspect]
     Indication: HEPATITIS C
     Dosage: 120 MCG;QW;SC
     Route: 058
     Dates: start: 20070407
  2. RIBAVIRIN [Suspect]
     Indication: HEPATITIS C
     Dosage: PO
     Route: 048
     Dates: start: 20070407
  3. LIPITOR [Concomitant]
  4. SYNTHROID [Concomitant]
  5. PROCRIT [Suspect]
     Indication: ANAEMIA
     Dates: start: 20070401
  6. INSULIN PUMP [Suspect]
     Dates: start: 20071001

REACTIONS (9)
  - ACIDOSIS [None]
  - ALOPECIA [None]
  - ANAEMIA [None]
  - ANXIETY [None]
  - BLOOD GLUCOSE INCREASED [None]
  - BLOOD KETONE BODY [None]
  - CONTUSION [None]
  - DEVICE OCCLUSION [None]
  - HYPOGLYCAEMIA [None]
